FAERS Safety Report 20849857 (Version 4)
Quarter: 2022Q3

REPORT INFORMATION
  Report Type: Spontaneous
  Country: US (occurrence: US)
  Receive Date: 20220519
  Receipt Date: 20220930
  Transmission Date: 20221026
  Serious: Yes (Hospitalization, Other)
  Sender: FDA-Public Use
  Company Number: US-GLAXOSMITHKLINE-US2022AMR078171

PATIENT

DRUGS (13)
  1. ZEJULA [Suspect]
     Active Substance: NIRAPARIB
     Indication: Ovarian cancer
     Dosage: 200 MG, QD
     Route: 048
     Dates: start: 20211121
  2. ZEJULA [Suspect]
     Active Substance: NIRAPARIB
     Dosage: UNK UNK, Z (100MG/200MG EVERY OTHER DAY)
     Route: 048
     Dates: start: 20211123
  3. ZEJULA [Suspect]
     Active Substance: NIRAPARIB
     Dosage: UNK UNK, Z (100 MG CAPSULE BY MOUTH EVERY OTHER DAY ALTERNATING WITH 200 MG CAPSULES)
     Dates: end: 20220826
  4. ZEJULA [Suspect]
     Active Substance: NIRAPARIB
     Dosage: UNK UNK, Z (100 MG EVERY OTHER DAY ALTERNATING WITH 200 MG)
     Route: 048
     Dates: start: 20220903
  5. CALCIUM [Concomitant]
     Active Substance: CALCIUM
     Indication: Product used for unknown indication
     Dosage: UNK
  6. MAGNESIUM [Concomitant]
     Active Substance: MAGNESIUM
     Indication: Product used for unknown indication
     Dosage: UNK
  7. GABAPENTIN [Concomitant]
     Active Substance: GABAPENTIN
     Indication: Product used for unknown indication
     Dosage: UNK
  8. FOSAMAX [Concomitant]
     Active Substance: ALENDRONATE SODIUM
     Indication: Product used for unknown indication
     Dosage: UNK
  9. IRON [Concomitant]
     Active Substance: IRON
     Indication: Product used for unknown indication
     Dosage: UNK
  10. DONEPEZIL [Concomitant]
     Active Substance: DONEPEZIL
     Indication: Product used for unknown indication
     Dosage: UNK
  11. XARELTO [Concomitant]
     Active Substance: RIVAROXABAN
     Indication: Product used for unknown indication
     Dosage: UNK
  12. VITAMIN B12 [Concomitant]
     Active Substance: CYANOCOBALAMIN
     Indication: Product used for unknown indication
     Dosage: UNK
  13. VITAMIN D3 [Concomitant]
     Active Substance: CHOLECALCIFEROL
     Indication: Product used for unknown indication
     Dosage: UNK

REACTIONS (13)
  - Rectal haemorrhage [Not Recovered/Not Resolved]
  - Cough [Recovered/Resolved]
  - Pneumonia [Recovered/Resolved]
  - Nausea [Not Recovered/Not Resolved]
  - Constipation [Not Recovered/Not Resolved]
  - Rhinorrhoea [Not Recovered/Not Resolved]
  - Pyrexia [Not Recovered/Not Resolved]
  - Decreased appetite [Unknown]
  - Viral disease carrier [Unknown]
  - Dysphagia [Unknown]
  - Carbohydrate antigen 125 increased [Not Recovered/Not Resolved]
  - Inappropriate schedule of product administration [Not Recovered/Not Resolved]
  - Off label use [Unknown]

NARRATIVE: CASE EVENT DATE: 20220826
